FAERS Safety Report 15362083 (Version 1)
Quarter: 2018Q3

REPORT INFORMATION
  Report Type: Spontaneous
  Country: US (occurrence: US)
  Receive Date: 20180907
  Receipt Date: 20180907
  Transmission Date: 20181010
  Serious: No
  Sender: FDA-Public Use
  Company Number: US-BAYER-2018-167896

PATIENT
  Age: 92 Year
  Sex: Male
  Weight: 67 kg

DRUGS (2)
  1. VALSARTAN. [Concomitant]
     Active Substance: VALSARTAN
     Dosage: UNK
  2. MIRALAX [Suspect]
     Active Substance: POLYETHYLENE GLYCOL 3350
     Indication: GASTROINTESTINAL DISORDER
     Dosage: 17 G, UNK, WITH 8 OUNCE BEVERAGE
     Route: 048
     Dates: start: 2018, end: 20180904

REACTIONS (2)
  - Frequent bowel movements [Unknown]
  - Product use issue [Unknown]
